FAERS Safety Report 15640614 (Version 1)
Quarter: 2018Q4

REPORT INFORMATION
  Report Type: Spontaneous
  Country: GB (occurrence: GB)
  Receive Date: 20181120
  Receipt Date: 20181120
  Transmission Date: 20190205
  Serious: Yes (Other)
  Sender: FDA-Public Use
  Company Number: GB-SA-2018SA311853

PATIENT
  Sex: Female

DRUGS (1)
  1. PRALUENT [Suspect]
     Active Substance: ALIROCUMAB
     Indication: PRODUCT USED FOR UNKNOWN INDICATION
     Dosage: 150 MG, QOW
     Route: 058

REACTIONS (6)
  - Lower respiratory tract infection [Unknown]
  - Underdose [Unknown]
  - Injection site erythema [Unknown]
  - Pain in extremity [Unknown]
  - Influenza [Unknown]
  - Injection site mass [Unknown]
